FAERS Safety Report 9758441 (Version 1)
Quarter: 2013Q4

REPORT INFORMATION
  Report Type: Spontaneous
  Country: US (occurrence: None)
  Receive Date: 20131213
  Receipt Date: 20131213
  Transmission Date: 20140711
  Serious: Yes (Hospitalization)
  Sender: FDA-Public Use
  Company Number: None

PATIENT
  Age: 45 Year
  Sex: Male
  Weight: 124 kg

DRUGS (5)
  1. AZITHROMYCIN 250MG [Suspect]
     Indication: PYREXIA
     Dates: start: 20130919, end: 20130922
  2. METFORMIN [Concomitant]
  3. VICTOZA [Concomitant]
  4. LISINOPRIL/HCTZ [Concomitant]
  5. VITAMIN D [Concomitant]

REACTIONS (1)
  - Ventricular arrhythmia [None]
